FAERS Safety Report 10811880 (Version 3)
Quarter: 2015Q1

REPORT INFORMATION
  Report Type: Report from Study
  Country: CA (occurrence: CA)
  Receive Date: 20150217
  Receipt Date: 20150318
  Transmission Date: 20150721
  Serious: Yes (Other)
  Sender: FDA-Public Use
  Company Number: CA-ROCHE-1413580

PATIENT
  Age: 60 Year
  Sex: Female

DRUGS (18)
  1. COENZYME Q10 COMPLEX (UNK INGREDIENTS) [Concomitant]
  2. ESOMEPRAZOLE [Concomitant]
     Active Substance: ESOMEPRAZOLE
  3. VITAMIN B12 [Concomitant]
     Active Substance: CYANOCOBALAMIN
  4. OXYNEO [Concomitant]
     Active Substance: OXYCODONE
  5. WELLBUTRIN [Concomitant]
     Active Substance: BUPROPION HYDROCHLORIDE
  6. OXYCODONE [Concomitant]
     Active Substance: OXYCODONE
  7. ACTEMRA [Suspect]
     Active Substance: TOCILIZUMAB
     Indication: RHEUMATOID ARTHRITIS
     Route: 042
     Dates: start: 20140213, end: 20141224
  8. PRISTIQ EXTENDED RELEASE [Concomitant]
     Active Substance: DESVENLAFAXINE SUCCINATE
  9. ATORVASTATIN [Concomitant]
     Active Substance: ATORVASTATIN
  10. MODAFINIL. [Concomitant]
     Active Substance: MODAFINIL
  11. ASAPHEN [Concomitant]
     Active Substance: ASPIRIN
  12. CORTISONE ACETATE. [Concomitant]
     Active Substance: CORTISONE ACETATE
  13. CORTISONE [Concomitant]
     Active Substance: CORTISONE\HYDROCORTISONE
  14. ZOPICLONE [Concomitant]
     Active Substance: ZOPICLONE
  15. INSULIN [Concomitant]
     Active Substance: INSULIN NOS
  16. ATIVAN [Concomitant]
     Active Substance: LORAZEPAM
  17. DESLORATADINE. [Concomitant]
     Active Substance: DESLORATADINE
  18. LISINOPRIL. [Concomitant]
     Active Substance: LISINOPRIL

REACTIONS (4)
  - Skin ulcer [Not Recovered/Not Resolved]
  - Mole excision [Unknown]
  - Urinary bladder haemorrhage [Unknown]
  - Drug ineffective [Unknown]

NARRATIVE: CASE EVENT DATE: 20140528
